FAERS Safety Report 6575735-5 (Version None)
Quarter: 2010Q1

REPORT INFORMATION
  Report Type: 
  Country: None (occurrence: None)
  Receive Date: 20100209
  Receipt Date: 20100201
  Transmission Date: 20100710
  Serious: Yes (Hospitalization)
  Sender: FDA-Public Use
  Company Number: SE-JNJFOC-20100200220

PATIENT
  Sex: Female

DRUGS (10)
  1. RISPERDAL [Suspect]
     Indication: DRUG USE FOR UNKNOWN INDICATION
     Route: 048
  2. RISPERDAL [Suspect]
     Route: 048
  3. LIPITOR [Concomitant]
     Route: 065
  4. CITALOPRAM [Concomitant]
     Route: 065
  5. ALVEDON [Concomitant]
     Route: 065
  6. HEMINEVRIN [Concomitant]
     Route: 065
  7. LAXOBERAL [Concomitant]
     Route: 065
  8. OXASCAND [Concomitant]
     Route: 065
  9. LEVOPROPOXYPHENE NAPSILATE [Concomitant]
     Route: 065
  10. FORLAX [Concomitant]
     Route: 065

REACTIONS (5)
  - FATIGUE [None]
  - HYPOTENSION [None]
  - OVERDOSE [None]
  - PALLOR [None]
  - UNRESPONSIVE TO STIMULI [None]
